FAERS Safety Report 22207656 (Version 1)
Quarter: 2023Q2

REPORT INFORMATION
  Report Type: Report from Study
  Country: CA (occurrence: CA)
  Receive Date: 20230413
  Receipt Date: 20230413
  Transmission Date: 20230722
  Serious: Yes (Other)
  Sender: FDA-Public Use
  Company Number: CA-002147023-NVSC2022CA258874

PATIENT
  Age: 39 Year
  Sex: Male

DRUGS (1)
  1. MAYZENT [Suspect]
     Active Substance: SIPONIMOD
     Indication: Secondary progressive multiple sclerosis
     Dosage: UNK
     Route: 048
     Dates: start: 20221115

REACTIONS (10)
  - Urinary retention [Unknown]
  - Vision blurred [Not Recovered/Not Resolved]
  - Dysphonia [Unknown]
  - Liver disorder [Unknown]
  - Illness [Unknown]
  - Back pain [Unknown]
  - Renal pain [Unknown]
  - Chromaturia [Unknown]
  - Fatigue [Unknown]
  - Dizziness [Unknown]

NARRATIVE: CASE EVENT DATE: 20221117
